FAERS Safety Report 12859614 (Version 2)
Quarter: 2017Q1

REPORT INFORMATION
  Report Type: Spontaneous
  Country: US (occurrence: US)
  Receive Date: 20161018
  Receipt Date: 20170207
  Transmission Date: 20170428
  Serious: No
  Sender: FDA-Public Use
  Company Number: US-ACTELION-A-NJ2016-143771

PATIENT
  Age: 63 Year
  Sex: Female

DRUGS (2)
  1. TRACLEER [Suspect]
     Active Substance: BOSENTAN
     Indication: PULMONARY ARTERIAL HYPERTENSION
     Dosage: 125 MG, BID
     Route: 048
     Dates: start: 20111014, end: 20170102
  2. SILDENAFIL. [Concomitant]
     Active Substance: SILDENAFIL

REACTIONS (11)
  - Ear infection [Unknown]
  - Chest pain [Unknown]
  - Drug dose omission [Unknown]
  - Dyspnoea [Unknown]
  - Weight decreased [Unknown]
  - Nasopharyngitis [Unknown]
  - Decreased appetite [Unknown]
  - Palpitations [Unknown]
  - Pharyngeal erythema [Unknown]
  - Nasal congestion [Unknown]
  - Pharyngeal oedema [Unknown]
